FAERS Safety Report 7113435-3 (Version None)
Quarter: 2010Q4

REPORT INFORMATION
  Report Type: 
  Country: None (occurrence: None)
  Receive Date: 20101119
  Receipt Date: 20101115
  Transmission Date: 20110411
  Serious: Yes (Other)
  Sender: FDA-Public Use
  Company Number: ES-PFIZER INC-2010148964

PATIENT
  Age: 84 Year
  Sex: Female

DRUGS (1)
  1. TOVIAZ [Suspect]
     Indication: UTERINE PROLAPSE
     Dosage: 8 MG, 1X/DAY
     Route: 048
     Dates: start: 20100803, end: 20100810

REACTIONS (2)
  - DIZZINESS [None]
  - PRESYNCOPE [None]
